FAERS Safety Report 8988947 (Version 1)
Quarter: 2012Q4

REPORT INFORMATION
  Report Type: 
  Country: FR (occurrence: FR)
  Receive Date: 20121228
  Receipt Date: 20121228
  Transmission Date: 20130627
  Serious: Yes (Hospitalization)
  Sender: FDA-Public Use
  Company Number: FR-UCBSA-073737

PATIENT
  Age: 19 Year
  Sex: Female

DRUGS (10)
  1. KEPPRA [Suspect]
     Dosage: DAILY DOSE: 2 G
     Route: 042
     Dates: start: 2012, end: 20121018
  2. KEPPRA [Suspect]
     Dosage: DAILY DOSE: 1G
     Route: 042
     Dates: start: 20120928, end: 2012
  3. AXEPIM [Suspect]
     Dosage: IN 24 HOURS, 8 ADMINISTRATIONS
     Route: 042
     Dates: start: 20121010, end: 20121012
  4. PARACETAMOL [Concomitant]
     Dosage: OCCASIONALLY
  5. LOVENOX [Concomitant]
     Dates: start: 20120929
  6. RIVOTRIL [Concomitant]
     Dates: start: 20120928
  7. PRODILANTIN [Concomitant]
     Dates: start: 20120928
  8. NESDONAL [Concomitant]
     Dates: start: 20120928, end: 20121003
  9. TAZOCILLINE [Concomitant]
     Dates: start: 20121003
  10. AUGMENTIN [Concomitant]
     Dates: start: 20121003

REACTIONS (4)
  - Agranulocytosis [Recovering/Resolving]
  - Lung disorder [Unknown]
  - Anaemia [Unknown]
  - Thrombocytosis [Unknown]
